FAERS Safety Report 9050278 (Version 2)
Quarter: 2013Q1

REPORT INFORMATION
  Report Type: Spontaneous
  Country: CA (occurrence: CA)
  Receive Date: 20130205
  Receipt Date: 20130214
  Transmission Date: 20140127
  Serious: Yes (Disabling, Other)
  Sender: FDA-Public Use
  Company Number: CA-PFIZER INC-2012300217

PATIENT
  Age: 53 Year
  Sex: Female
  Weight: 58.96 kg

DRUGS (10)
  1. VENLAFAXINE [Suspect]
     Indication: DEPRESSION
     Dosage: 75 MG, 2X/DAY
     Route: 048
     Dates: start: 201208, end: 201211
  2. PRISTIQ [Suspect]
     Dosage: UNK
  3. ATIVAN [Concomitant]
     Indication: INSOMNIA
     Dosage: 0.5 MG, 1X/DAY AT BEDTIME
     Route: 048
     Dates: start: 201006
  4. ATIVAN [Concomitant]
     Indication: ANXIETY
  5. PREVACID [Concomitant]
     Indication: GASTROOESOPHAGEAL REFLUX DISEASE
     Dosage: 30 MG, 1X/DAY
     Route: 048
  6. SYNTHROID [Concomitant]
     Indication: MENOPAUSE
     Dosage: 60 MG, 3X/DAY
     Route: 048
     Dates: start: 201007
  7. PROGESTAN [Concomitant]
     Indication: MENOPAUSE
     Dosage: 100 MG, 1X/DAY
     Route: 048
     Dates: start: 201007
  8. BIESTROGEN [Concomitant]
     Indication: MENOPAUSE
     Dosage: 2.1 MG, 1X/DAY
     Route: 048
     Dates: start: 201007
  9. TESTOSTERONE [Concomitant]
     Indication: MENOPAUSE
     Dosage: UNK
     Route: 048
  10. MULTIVITAMINS [Concomitant]
     Dosage: UNK, 1X/DAY
     Dates: start: 2008

REACTIONS (9)
  - Irritable bowel syndrome [Recovering/Resolving]
  - Drug ineffective [Recovering/Resolving]
  - Aggression [Recovered/Resolved]
  - Pain [Recovered/Resolved]
  - Abdominal distension [Recovered/Resolved]
  - Nausea [Recovered/Resolved]
  - Crying [Recovered/Resolved]
  - Irritability [Recovered/Resolved]
  - Sluggishness [Recovered/Resolved]
